FAERS Safety Report 14305141 (Version 1)
Quarter: 2017Q4

REPORT INFORMATION
  Report Type: Spontaneous
  Country: JP (occurrence: JP)
  Receive Date: 20171219
  Receipt Date: 20171219
  Transmission Date: 20180321
  Serious: Yes (Life-Threatening, Other)
  Sender: FDA-Public Use
  Company Number: JP-OTSUKA-006053

PATIENT
  Age: 59 Year
  Sex: Male
  Weight: 50.8 kg

DRUGS (20)
  1. AKIRIDEN [Concomitant]
     Active Substance: BIPERIDEN
     Indication: PARKINSON^S DISEASE
     Dosage: 2 MG, BID
     Route: 048
     Dates: start: 20041211, end: 20090228
  2. LEVOTOMIN [Concomitant]
     Active Substance: LEVOMEPROMAZINE
     Indication: INSOMNIA
     Dosage: 10 MG, QD
     Route: 048
     Dates: start: 200412, end: 20090227
  3. ETISEDAN [Concomitant]
     Active Substance: ETIZOLAM
     Dosage: 4 MG, QD
     Route: 048
     Dates: start: 20090306
  4. LEVOMEPROMAZINE [Concomitant]
     Active Substance: LEVOMEPROMAZINE
     Dosage: FORM=TABS
     Dates: start: 200412
  5. GASPORT [Concomitant]
     Active Substance: FAMOTIDINE
     Dosage: 10 MG, BID
     Route: 048
     Dates: start: 20090306
  6. RONFLEMAN [Concomitant]
     Indication: INSOMNIA
     Dosage: 0.25 MG, QD
     Route: 048
     Dates: start: 200412, end: 20090227
  7. FAMOTIDINE. [Concomitant]
     Active Substance: FAMOTIDINE
     Dosage: FORM=TABS
     Dates: start: 20041211
  8. GASPORT [Concomitant]
     Active Substance: FAMOTIDINE
     Indication: GASTRIC ULCER
     Dosage: 10 MG, BID
     Route: 048
     Dates: start: 20041211, end: 20090228
  9. YOUCOBAL [Concomitant]
     Dosage: 1 DF, BID
     Route: 048
     Dates: start: 20090306
  10. RISPERIDONE. [Suspect]
     Active Substance: RISPERIDONE
     Dosage: 1 MG, BID
     Route: 048
     Dates: start: 20041211
  11. SENNARIDE [Concomitant]
     Active Substance: SENNOSIDES A AND B
     Dosage: 3 MG, QD
     Route: 048
     Dates: start: 20090306
  12. ABILIFY [Suspect]
     Active Substance: ARIPIPRAZOLE
     Indication: SCHIZOPHRENIA
     Dosage: 6 MG, BID
     Route: 048
     Dates: start: 200804, end: 20090228
  13. SENNARIDE [Concomitant]
     Active Substance: SENNOSIDES A AND B
     Indication: CONSTIPATION
     Dosage: 3 MG, QD
     Route: 048
     Dates: start: 200412, end: 20090227
  14. YOUCOBAL [Concomitant]
     Indication: FACIAL PARALYSIS
     Dosage: 1 DF, BID
     Route: 048
     Dates: start: 20061208, end: 20090228
  15. AKIRIDEN [Concomitant]
     Active Substance: BIPERIDEN
     Dosage: 2 MG, BID
     Route: 048
     Dates: start: 20090306
  16. ETISEDAN [Concomitant]
     Active Substance: ETIZOLAM
     Indication: INSOMNIA
     Dosage: 4 MG, QD
     Route: 048
     Dates: start: 200412, end: 20090227
  17. RONFLEMAN [Concomitant]
     Dosage: 0.25 MG, QD
     Route: 048
     Dates: start: 20090306
  18. RISPERIDONE. [Suspect]
     Active Substance: RISPERIDONE
     Indication: SCHIZOPHRENIA
     Dosage: 1 MG, BID
     Route: 048
     Dates: start: 20041211
  19. RISPERIDONE. [Suspect]
     Active Substance: RISPERIDONE
     Route: 048
  20. LEVOTOMIN [Concomitant]
     Active Substance: LEVOMEPROMAZINE
     Dosage: 10 MG, QD
     Route: 048
     Dates: start: 20090306

REACTIONS (4)
  - Hyponatraemia [Recovered/Resolved]
  - Pneumonia [Unknown]
  - Neuroleptic malignant syndrome [Recovered/Resolved]
  - Epilepsy [Recovered/Resolved]

NARRATIVE: CASE EVENT DATE: 2009
